FAERS Safety Report 5407066-0 (Version None)
Quarter: 2007Q3

REPORT INFORMATION
  Report Type: 
  Country: None (occurrence: None)
  Receive Date: 20070807
  Receipt Date: 20070730
  Transmission Date: 20080115
  Serious: Yes (Death, Other)
  Sender: FDA-Public Use
  Company Number: JP-ASTRAZENECA-2007AP04711

PATIENT
  Age: 59 Year
  Sex: Male

DRUGS (4)
  1. SEROQUEL [Suspect]
     Indication: PARKINSONISM
     Route: 048
     Dates: start: 20040501
  2. RISPERIDONE [Concomitant]
     Indication: PSYCHIATRIC SYMPTOM
     Dates: end: 20040501
  3. TRIHEXYPHENIDYL HYDROCHLORIDE [Concomitant]
     Indication: PARKINSONISM
     Dates: start: 20040701
  4. AMANTADINE HYDROCHLORIDE [Concomitant]
     Indication: PARKINSONISM
     Dates: start: 20040701

REACTIONS (4)
  - ACUTE RESPIRATORY DISTRESS SYNDROME [None]
  - ILEUS [None]
  - PARKINSONISM [None]
  - PNEUMONIA ASPIRATION [None]
